FAERS Safety Report 5167254-8 (Version None)
Quarter: 2006Q4

REPORT INFORMATION
  Report Type: 
  Country: None (occurrence: None)
  Receive Date: 20061207
  Receipt Date: 20061204
  Transmission Date: 20070319
  Serious: Yes (Hospitalization)
  Sender: FDA-Public Use
  Company Number: US-ROXANE LABORATORIES, INC-2006-BP-14045RO

PATIENT
  Sex: Male
  Weight: 81 kg

DRUGS (14)
  1. AZATHIOPRINE TABLETS USP, 50 MG [Suspect]
     Indication: COLITIS ULCERATIVE
     Route: 048
     Dates: start: 20010201
  2. ASACOL [Concomitant]
     Indication: COLITIS ULCERATIVE
     Dates: start: 19990101
  3. NEURONTIN [Concomitant]
  4. PRILOSEC [Concomitant]
  5. DARVOCET [Concomitant]
  6. QUININE SULFATE [Concomitant]
  7. LIDODERM [Concomitant]
  8. CLINDAGEL [Concomitant]
  9. VITAMIN B COMPLEX CAP [Concomitant]
  10. ZINC [Concomitant]
  11. FISH OIL [Concomitant]
  12. IRON [Concomitant]
  13. MULTIVITAMINS PLUS IRON [Concomitant]
  14. PROBIOTIC [Concomitant]

REACTIONS (5)
  - ANAEMIA OF CHRONIC DISEASE [None]
  - CLOSTRIDIAL INFECTION [None]
  - OESOPHAGITIS [None]
  - PNEUMONIA [None]
  - PYREXIA [None]
